FAERS Safety Report 9742679 (Version 2)
Quarter: 2015Q3

REPORT INFORMATION
  Report Type: Spontaneous
  Country: US (occurrence: US)
  Receive Date: 20131210
  Receipt Date: 20150804
  Transmission Date: 20151125
  Serious: No
  Sender: FDA-Public Use
  Company Number: US-GILEAD-2009-0025400

PATIENT
  Age: 79 Year
  Sex: Female

DRUGS (14)
  1. FUROSEMIDE. [Concomitant]
     Active Substance: FUROSEMIDE
  2. ADULT ASPIRIN [Concomitant]
  3. VIVELLE-DOT [Concomitant]
     Active Substance: ESTRADIOL
  4. AVAPRO [Concomitant]
     Active Substance: IRBESARTAN
  5. LEVOTHROID [Concomitant]
     Active Substance: LEVOTHYROXINE SODIUM
  6. NADOLOL. [Concomitant]
     Active Substance: NADOLOL
  7. CALCIUM [Concomitant]
     Active Substance: CALCIUM
  8. ROZEREM [Concomitant]
     Active Substance: RAMELTEON
  9. LETAIRIS [Suspect]
     Active Substance: AMBRISENTAN
     Indication: PULMONARY ARTERIAL HYPERTENSION
     Route: 048
     Dates: start: 20091028
  10. CYMBALTA [Concomitant]
     Active Substance: DULOXETINE HYDROCHLORIDE
  11. REQUIN [Concomitant]
     Active Substance: QUININE HYDROCHLORIDE
  12. NEURONTIN [Concomitant]
     Active Substance: GABAPENTIN
  13. TEMAZEPAM. [Concomitant]
     Active Substance: TEMAZEPAM
  14. KLOR-CON M10 [Concomitant]
     Active Substance: POTASSIUM CHLORIDE

REACTIONS (3)
  - Weight increased [Unknown]
  - Oedema [Unknown]
  - Swelling [Unknown]
